FAERS Safety Report 17009428 (Version 1)
Quarter: 2019Q4

REPORT INFORMATION
  Report Type: Spontaneous
  Country: GB (occurrence: GB)
  Receive Date: 20191108
  Receipt Date: 20191108
  Transmission Date: 20200122
  Serious: Yes (Other)
  Sender: FDA-Public Use
  Company Number: GB-NOVOPROD-694201

PATIENT
  Age: 4 Year
  Sex: Male
  Weight: 14.8 kg

DRUGS (1)
  1. NORDITROPIN [Suspect]
     Active Substance: SOMATROPIN
     Indication: GROWTH HORMONE DEFICIENCY
     Dosage: 0.3 MG, QD
     Route: 058
     Dates: start: 20171010, end: 20180702

REACTIONS (1)
  - Ependymoma malignant [Unknown]

NARRATIVE: CASE EVENT DATE: 20180702
